FAERS Safety Report 9440938 (Version 1)
Quarter: 2013Q3

REPORT INFORMATION
  Report Type: Spontaneous
  Country: US (occurrence: US)
  Receive Date: 20130805
  Receipt Date: 20130805
  Transmission Date: 20140515
  Serious: Yes (Hospitalization)
  Sender: FDA-Public Use
  Company Number: US-NOVEN-13US007365

PATIENT
  Age: 12 Year
  Sex: Female

DRUGS (1)
  1. DAYTRANA [Suspect]
     Indication: ATTENTION DEFICIT/HYPERACTIVITY DISORDER
     Dosage: 30 MG, UNK
     Route: 062
     Dates: start: 2012

REACTIONS (4)
  - Disturbance in social behaviour [Not Recovered/Not Resolved]
  - Application site irritation [Not Recovered/Not Resolved]
  - Drug administration error [Unknown]
  - Product quality issue [Not Recovered/Not Resolved]
